FAERS Safety Report 25845372 (Version 1)
Quarter: 2025Q3

REPORT INFORMATION
  Report Type: Spontaneous
  Country: CN (occurrence: CN)
  Receive Date: 20250925
  Receipt Date: 20250925
  Transmission Date: 20251020
  Serious: Yes (Hospitalization, Other)
  Sender: SANOFI AVENTIS
  Company Number: CN-SA-2025SA279390

PATIENT
  Age: 62 Year
  Sex: Male
  Weight: 47.5 kg

DRUGS (2)
  1. INSULIN GLARGINE [Suspect]
     Active Substance: INSULIN GLARGINE
     Indication: Blood glucose increased
     Dosage: 18 U, QD
     Route: 058
     Dates: start: 20250716, end: 20250809
  2. INSULIN ASPART [Suspect]
     Active Substance: INSULIN ASPART
     Indication: Blood glucose increased
     Dosage: 6 U, TID (6 U BEFORE BREAKFAST, 6 U BEFORE LUNCH, AND 6 U BEFORE DINNER)
     Route: 058
     Dates: start: 20250701, end: 20250809

REACTIONS (4)
  - Blood insulin increased [Unknown]
  - Insulin autoimmune syndrome [Unknown]
  - Anti-insulin antibody increased [Recovering/Resolving]
  - Diabetes mellitus inadequate control [Recovering/Resolving]

NARRATIVE: CASE EVENT DATE: 20250801
